FAERS Safety Report 22696092 (Version 7)
Quarter: 2023Q4

REPORT INFORMATION
  Report Type: Report from Study
  Country: US (occurrence: US)
  Receive Date: 20230712
  Receipt Date: 20231229
  Transmission Date: 20240109
  Serious: No
  Sender: FDA-Public Use
  Company Number: US-002147023-NVSC2023US154606

PATIENT
  Age: 36 Year
  Sex: Female

DRUGS (1)
  1. KESIMPTA [Suspect]
     Active Substance: OFATUMUMAB
     Indication: Multiple sclerosis
     Dosage: 20 MG, QMO
     Route: 058
     Dates: start: 20230328

REACTIONS (7)
  - Fall [Unknown]
  - Back injury [Unknown]
  - Dizziness [Unknown]
  - COVID-19 [Unknown]
  - Alopecia [Unknown]
  - Swelling face [Unknown]
  - Sinusitis [Unknown]

NARRATIVE: CASE EVENT DATE: 20230704
